FAERS Safety Report 5660921-9 (Version None)
Quarter: 2008Q1

REPORT INFORMATION
  Report Type: 
  Country: None (occurrence: None)
  Receive Date: 20080311
  Receipt Date: 20080307
  Transmission Date: 20080703
  Serious: No
  Sender: FDA-Public Use
  Company Number: US-JNJFOC-20080302399

PATIENT
  Age: 43 Year
  Sex: Male
  Weight: 104.33 kg

DRUGS (1)
  1. INVEGA [Suspect]
     Indication: PARANOIA
     Route: 048

REACTIONS (1)
  - HYPERHIDROSIS [None]
